FAERS Safety Report 7751446-5 (Version None)
Quarter: 2011Q3

REPORT INFORMATION
  Report Type: 
  Country: None (occurrence: None)
  Receive Date: 20110914
  Receipt Date: 20110831
  Transmission Date: 20111222
  Serious: Yes (Other)
  Sender: FDA-Public Use
  Company Number: PHHY2011US69518

PATIENT
  Age: 86 Year
  Sex: Female

DRUGS (5)
  1. DIOVAN [Suspect]
     Dosage: 160 MG, QD
  2. DIOVAN [Suspect]
     Dosage: 320 MG, QD AT NIGHT
  3. CRESTOR [Concomitant]
     Dosage: 200 MG, QD
  4. BYSTOLIC [Concomitant]
     Dosage: UNK
  5. NORVASC [Concomitant]
     Dosage: 5 MG, UNK

REACTIONS (4)
  - HEADACHE [None]
  - FAECES DISCOLOURED [None]
  - FALL [None]
  - HYPERTENSION [None]
